FAERS Safety Report 13067349 (Version 1)
Quarter: 2016Q4

REPORT INFORMATION
  Report Type: Report from Study
  Country: JP (occurrence: JP)
  Receive Date: 20161228
  Receipt Date: 20161228
  Transmission Date: 20170207
  Serious: Yes (Other)
  Sender: FDA-Public Use
  Company Number: JP-ALXN-A201610093AA

PATIENT

DRUGS (1)
  1. SOLIRIS [Suspect]
     Active Substance: ECULIZUMAB
     Indication: HAEMOLYTIC URAEMIC SYNDROME
     Dosage: 900 MG, UNK
     Route: 042
     Dates: start: 20160318

REACTIONS (5)
  - Enterococcal infection [Unknown]
  - Infection [Unknown]
  - Enterococcal infection [Unknown]
  - Hypertension [Not Recovered/Not Resolved]
  - Enterococcal infection [Unknown]

NARRATIVE: CASE EVENT DATE: 20160427
